FAERS Safety Report 7232908-6 (Version None)
Quarter: 2011Q1

REPORT INFORMATION
  Report Type: 
  Country: None (occurrence: None)
  Receive Date: 20110119
  Receipt Date: 20110110
  Transmission Date: 20110831
  Serious: Yes (Other)
  Sender: FDA-Public Use
  Company Number: PHHY2010DE09434

PATIENT
  Sex: Male
  Weight: 59 kg

DRUGS (5)
  1. ACLASTA [Suspect]
     Indication: OSTEOPOROSIS
     Dosage: 5 MG, ONCE
     Route: 042
     Dates: start: 20100114, end: 20100114
  2. PREDNISOLONE [Concomitant]
     Indication: MULTIPLE FRACTURES
     Dosage: 5 MG, UNK
     Route: 048
  3. METHOTREXATE [Concomitant]
     Dosage: 10 MG, ONCE WEEKLY
     Route: 048
  4. AZULFIDINE [Concomitant]
     Dosage: 40 MG, BID
     Route: 048
  5. MICARDIS HCT [Concomitant]
     Dosage: 1 DF, QD
     Route: 048

REACTIONS (3)
  - RHEUMATOID ARTHRITIS [None]
  - JOINT SWELLING [None]
  - ARTHRALGIA [None]
